FAERS Safety Report 25705093 (Version 2)
Quarter: 2025Q4

REPORT INFORMATION
  Report Type: Spontaneous
  Country: EU (occurrence: EU)
  Receive Date: 20250820
  Receipt Date: 20251022
  Transmission Date: 20260117
  Serious: Yes (Hospitalization, Other)
  Sender: AUROBINDO
  Company Number: EU-AEMPS-1741327

PATIENT
  Age: 62 Year
  Sex: Male

DRUGS (3)
  1. OXALIPLATIN [Interacting]
     Active Substance: OXALIPLATIN
     Indication: Pancreatic carcinoma metastatic
     Dosage: 141 MILLIGRAM (TOTAL)
     Route: 042
     Dates: start: 20250328, end: 20250328
  2. IRINOTECAN [Interacting]
     Active Substance: IRINOTECAN
     Indication: Pancreatic carcinoma metastatic
     Dosage: 249 MILLIGRAM TOTAL
     Route: 042
     Dates: start: 20250328, end: 20250328
  3. FLUOROURACIL [Interacting]
     Active Substance: FLUOROURACIL
     Indication: Pancreatic carcinoma metastatic
     Dosage: 3.98 GRAM (TOTAL)
     Route: 042
     Dates: start: 20250328, end: 20250328

REACTIONS (1)
  - Neutropenic colitis [Recovered/Resolved]

NARRATIVE: CASE EVENT DATE: 20250408
